FAERS Safety Report 8314109-3 (Version None)
Quarter: 2012Q2

REPORT INFORMATION
  Report Type: 
  Country: None (occurrence: None)
  Receive Date: 20120426
  Receipt Date: 20120423
  Transmission Date: 20120825
  Serious: Yes (Death, Hospitalization)
  Sender: FDA-Public Use
  Company Number: GR-B.I. PHARMACEUTICALS,INC./RIDGEFIELD-2012-EU-02277GB

PATIENT
  Age: 83 Year
  Sex: Male

DRUGS (4)
  1. OMNIC TOCAS [Concomitant]
     Indication: PROSTATIC DISORDER
  2. PRADAXA [Suspect]
     Indication: ATRIAL FIBRILLATION
     Dosage: 220 MG
     Route: 048
     Dates: start: 20111001
  3. CARVEDILOL [Concomitant]
     Indication: HYPERTENSION
  4. LASIX [Concomitant]
     Indication: DIURETIC THERAPY

REACTIONS (3)
  - MYOCARDIAL INFARCTION [None]
  - GASTROINTESTINAL HAEMORRHAGE [None]
  - ACUTE PULMONARY OEDEMA [None]
